FAERS Safety Report 23945891 (Version 1)
Quarter: 2024Q2

REPORT INFORMATION
  Report Type: Spontaneous
  Country: US (occurrence: US)
  Receive Date: 20240606
  Receipt Date: 20240606
  Transmission Date: 20240716
  Serious: No
  Sender: FDA-Public Use
  Company Number: US-Mission Pharmacal Company-2157828

PATIENT

DRUGS (2)
  1. THIOLA EC [Suspect]
     Active Substance: TIOPRONIN
     Indication: Cystinuria
     Route: 048
     Dates: start: 20231227
  2. THIOLA EC [Suspect]
     Active Substance: TIOPRONIN
     Route: 048

REACTIONS (1)
  - Alopecia [Unknown]
